FAERS Safety Report 18129221 (Version 1)
Quarter: 2020Q3

REPORT INFORMATION
  Report Type: Spontaneous
  Country: US (occurrence: US)
  Receive Date: 20200810
  Receipt Date: 20200810
  Transmission Date: 20201103
  Serious: Yes (Other)
  Sender: FDA-Public Use
  Company Number: US-ACCORD-194420

PATIENT
  Age: 43 Year
  Sex: Female
  Weight: 79.92 kg

DRUGS (1)
  1. ANASTROZOLE. [Suspect]
     Active Substance: ANASTROZOLE
     Indication: BREAST CANCER
     Dosage: ONCE A DAY
     Route: 048
     Dates: start: 20200701, end: 20200713

REACTIONS (10)
  - Urticaria [Not Recovered/Not Resolved]
  - Neuropathy peripheral [Unknown]
  - Swollen tongue [Unknown]
  - Dyspnoea [Unknown]
  - Raynaud^s phenomenon [Unknown]
  - Anaphylactic reaction [Unknown]
  - Rash [Unknown]
  - Tachycardia [Unknown]
  - Hot flush [Unknown]
  - Paraesthesia [Unknown]

NARRATIVE: CASE EVENT DATE: 20200710
